FAERS Safety Report 6725142-7 (Version None)
Quarter: 2010Q2

REPORT INFORMATION
  Report Type: 
  Country: None (occurrence: None)
  Receive Date: 20100514
  Receipt Date: 20100504
  Transmission Date: 20101027
  Serious: Yes (Other)
  Sender: FDA-Public Use
  Company Number: US-RB-009121-10

PATIENT
  Age: 24 Year
  Sex: Male

DRUGS (5)
  1. MUCINEX DM [Suspect]
     Dosage: TAKING 1 TABLET PER DOSE, TAKEN 3 DOSES IN 36 HOURS
     Route: 048
     Dates: start: 20100503
  2. TYLENOL COLD AND SINUS [Concomitant]
  3. VITAMINS (B12) [Concomitant]
  4. AFRIN [Concomitant]
  5. MULTI-VITAMIN [Concomitant]

REACTIONS (1)
  - HAEMOPTYSIS [None]
